FAERS Safety Report 9416224 (Version 1)
Quarter: 2013Q3

REPORT INFORMATION
  Report Type: Spontaneous
  Country: FR (occurrence: FR)
  Receive Date: 20130724
  Receipt Date: 20130724
  Transmission Date: 20140515
  Serious: Yes (Hospitalization)
  Sender: FDA-Public Use
  Company Number: FR-BAYER-2013-087790

PATIENT
  Age: 63 Year
  Sex: Male

DRUGS (13)
  1. IZILOX [Suspect]
     Dosage: 400 MG,1 TAB AT 10:00 AM
     Route: 048
     Dates: start: 20130530, end: 20130626
  2. LYRICA [Concomitant]
     Dosage: 150 MG, TID
  3. DIFFU K [Concomitant]
     Dosage: 600 MG, TID
  4. MOVICOL [Concomitant]
  5. ACTISKENAN [Concomitant]
     Dosage: 5 MG, UP TO 6 PER DAY
  6. INEXIUM [Concomitant]
     Dosage: 20 MG, HS
  7. AMLODIPINE [Concomitant]
     Dosage: 10 MG, HS
  8. VALSARTAN [Concomitant]
     Dosage: 80 MG, QD
  9. ESIDREX [Concomitant]
     Dosage: 25 MG, QD
  10. SKENAN [Concomitant]
     Dosage: 40 MG SR, BID
  11. RIMIFON [Concomitant]
     Indication: TUBERCULOSIS
     Dosage: 150 MG, 3 TABS AT 10:00AM
  12. RIFADINE [Concomitant]
     Indication: TUBERCULOSIS
     Dosage: 300 MG, 3 CAPSULES AT 10:00 AM
  13. DEXAMBUTOL [Concomitant]
     Indication: TUBERCULOSIS
     Dosage: 500 MG, 4 TABS AT 10:00 AM

REACTIONS (2)
  - Hepatocellular injury [Recovering/Resolving]
  - Rash [Recovered/Resolved]
